FAERS Safety Report 15575817 (Version 1)
Quarter: 2018Q4

REPORT INFORMATION
  Report Type: Other
  Country: FR (occurrence: FR)
  Receive Date: 20181101
  Receipt Date: 20181101
  Transmission Date: 20190205
  Serious: Yes (Other)
  Sender: FDA-Public Use
  Company Number: FR-CELLTRION INC.-2018FR023337

PATIENT

DRUGS (4)
  1. REMSIMA [Suspect]
     Active Substance: INFLIXIMAB
     Indication: COLITIS
     Dosage: 305 MG, CYCLIC, THEN ANOTHER INJECTION AFTER 2 WEEKS AND AGAIN AFTER 6 WEEKS
     Route: 042
     Dates: start: 20180607, end: 20180607
  2. REMICADE [Suspect]
     Active Substance: INFLIXIMAB
     Indication: COLITIS
     Dosage: 305 MG, CYCLIC
     Route: 042
     Dates: start: 201310, end: 20180606
  3. REMSIMA [Suspect]
     Active Substance: INFLIXIMAB
     Dosage: 305 MG, CYCLIC
     Route: 042
     Dates: start: 20180621, end: 20180621
  4. REMSIMA [Suspect]
     Active Substance: INFLIXIMAB
     Dosage: 305 MG, CYCLIC
     Route: 042
     Dates: start: 20180719, end: 20180719

REACTIONS (2)
  - Inappropriate schedule of product administration [Unknown]
  - Memory impairment [Not Recovered/Not Resolved]

NARRATIVE: CASE EVENT DATE: 20180827
